FAERS Safety Report 5635636-3 (Version None)
Quarter: 2008Q1

REPORT INFORMATION
  Report Type: 
  Country: None (occurrence: None)
  Receive Date: 20080220
  Receipt Date: 20080207
  Transmission Date: 20080703
  Serious: Yes (Other)
  Sender: FDA-Public Use
  Company Number: GXKR2008DE01492

PATIENT
  Sex: Female

DRUGS (1)
  1. DOXYCYCLINE [Suspect]
     Dosage: 100 MG, BID, ORAL
     Route: 048
     Dates: start: 20071201

REACTIONS (2)
  - HEADACHE [None]
  - HYPERTENSION [None]
